FAERS Safety Report 11652044 (Version 4)
Quarter: 2017Q1

REPORT INFORMATION
  Report Type: Spontaneous
  Country: US (occurrence: US)
  Receive Date: 20151022
  Receipt Date: 20170119
  Transmission Date: 20170428
  Serious: No
  Sender: FDA-Public Use
  Company Number: US-PFIZER INC-2015351077

PATIENT
  Age: 60 Year
  Sex: Female
  Weight: 136 kg

DRUGS (22)
  1. REVATIO [Suspect]
     Active Substance: SILDENAFIL CITRATE
     Indication: CARDIAC DISORDER
     Dosage: UNK UNK, 3X/DAY
     Dates: start: 2006
  2. FUROSEMIDE. [Concomitant]
     Active Substance: FUROSEMIDE
     Dosage: 40 MG, ALTERNATE DAY (1 PO QOD)
     Route: 048
  3. HYDROCODONE/ACETAMINOPHEN [Concomitant]
     Active Substance: ACETAMINOPHEN\HYDROCODONE
     Indication: PAIN
     Dosage: UNK UNK, AS NEEDED [HYDROCODONE: 5]/ [PARACETAMOL: 325], TAKE 1-2 TABLETS BY MOUTH EVERY 6 HOURS
     Route: 048
  4. REVATIO [Suspect]
     Active Substance: SILDENAFIL CITRATE
     Indication: PULMONARY HYPERTENSION
  5. CYMBALTA [Concomitant]
     Active Substance: DULOXETINE HYDROCHLORIDE
     Dosage: 30 MG, 2X/DAY
     Route: 048
  6. METFORMIN [Concomitant]
     Active Substance: METFORMIN HYDROCHLORIDE
     Dosage: 1000 MG, 2X/DAY
     Route: 048
  7. WARFARIN [Concomitant]
     Active Substance: WARFARIN
     Dosage: UNK, 1X/DAY
     Route: 048
  8. CYCLOBENZAPRINE [Concomitant]
     Active Substance: CYCLOBENZAPRINE
     Dosage: 10 MG, AS NEEDED (PRN)
     Route: 048
  9. DILTIAZEM. [Concomitant]
     Active Substance: DILTIAZEM
     Dosage: 180 MG, 1X/DAY
     Route: 048
  10. WARFARIN [Concomitant]
     Active Substance: WARFARIN
     Dosage: 1 MG, DAILY
     Route: 048
  11. WARFARIN [Concomitant]
     Active Substance: WARFARIN
     Dosage: 3 MG, DAILY
     Route: 048
  12. PANTOPRAZOLE [Concomitant]
     Active Substance: PANTOPRAZOLE SODIUM
     Dosage: 40 MG, 2X/DAY
     Route: 048
  13. VOLTAREN [Concomitant]
     Active Substance: DICLOFENAC SODIUM
     Dosage: UNK UNK, 4X/DAY (TO AFFECTED AREA Q6H)
     Route: 061
  14. ATORVASTATIN [Concomitant]
     Active Substance: ATORVASTATIN
     Dosage: 10 MG, 1X/DAY
     Route: 048
  15. MAGNESIUM [Concomitant]
     Active Substance: MAGNESIUM
     Dosage: 250 MG, 1X/DAY
  16. MUPIROCIN. [Concomitant]
     Active Substance: MUPIROCIN
     Indication: RASH
     Dosage: UNK UNK, AS NEEDED (2% TOPICAL OINTMENT, PRN)
     Route: 061
  17. REVATIO [Suspect]
     Active Substance: SILDENAFIL CITRATE
     Indication: LUNG DISORDER
     Dosage: 20 MG, 3X/DAY
     Route: 048
  18. FERROUS GLUCONATE [Concomitant]
     Active Substance: FERROUS GLUCONATE
     Dosage: 324 MG, 3X/DAY (3 TIMES PER DAY WITH MEALS)
     Route: 048
  19. FLONASE [Concomitant]
     Active Substance: FLUTICASONE PROPIONATE
     Dosage: 4 DF, 1X/DAY (2 PUFFS EACH NOSTRIL QD)
     Route: 045
  20. HUMULIN NOS [Concomitant]
     Active Substance: INSULIN HUMAN
     Dosage: 47 IU, 3X/DAY  [INSULIN HUMAN INJECTION, ISOPHANE 70]/ [INSULIN HUMAN 30]
     Route: 058
  21. POTASSIUM CHLORIDE. [Concomitant]
     Active Substance: POTASSIUM CHLORIDE
     Dosage: 20 MEQ, 1X/DAY
     Route: 048
  22. RYTHMOL [Concomitant]
     Active Substance: PROPAFENONE HYDROCHLORIDE
     Dosage: 150 MG, 3X/DAY
     Route: 048

REACTIONS (3)
  - Dyspnoea [Unknown]
  - Amnesia [Unknown]
  - Memory impairment [Unknown]
